FAERS Safety Report 25531180 (Version 1)
Quarter: 2025Q3

REPORT INFORMATION
  Report Type: Spontaneous
  Country: CH (occurrence: CH)
  Receive Date: 20250708
  Receipt Date: 20250708
  Transmission Date: 20251020
  Serious: Yes (Death, Life-Threatening, Hospitalization, Other)
  Sender: PFIZER
  Company Number: None

PATIENT
  Age: 60 Year
  Sex: Male
  Weight: 102.8 kg

DRUGS (19)
  1. ALDACTONE [Suspect]
     Active Substance: SPIRONOLACTONE
     Dosage: UNK
     Route: 048
     Dates: end: 202504
  2. AVIBACTAM SODIUM\CEFTAZIDIME [Suspect]
     Active Substance: AVIBACTAM SODIUM\CEFTAZIDIME
     Dosage: FREQ: CYCLICAL; PREVIOUS CYCLE FROM 14 TO 15.04.2025
     Route: 048
     Dates: start: 20250525, end: 20250602
  3. METRONIDAZOLE [Suspect]
     Active Substance: METRONIDAZOLE
     Dosage: FREQ:8 H
     Route: 042
     Dates: start: 20250525, end: 20250602
  4. VANCOMYCIN [Suspect]
     Active Substance: VANCOMYCIN
     Dosage: 1000 MG, 1X/DAY
     Route: 048
     Dates: end: 20250614
  5. DAFALGAN [Suspect]
     Active Substance: ACETAMINOPHEN
     Route: 048
     Dates: end: 20250616
  6. VALACYCLOVIR HYDROCHLORIDE [Suspect]
     Active Substance: VALACYCLOVIR HYDROCHLORIDE
     Dosage: FREQ:12 H
     Route: 048
     Dates: start: 20250414, end: 20250416
  7. CELLCEPT [Suspect]
     Active Substance: MYCOPHENOLATE MOFETIL
     Dosage: FREQ:12 H
     Route: 048
     Dates: start: 20250414, end: 20250504
  8. BACTRIM [Suspect]
     Active Substance: SULFAMETHOXAZOLE\TRIMETHOPRIM
     Route: 048
     Dates: end: 20250502
  9. AMOXICILLIN\CLAVULANATE POTASSIUM [Suspect]
     Active Substance: AMOXICILLIN\CLAVULANATE POTASSIUM
  10. BASILIXIMAB [Suspect]
     Active Substance: BASILIXIMAB
     Dosage: UNK
     Route: 048
     Dates: end: 20250418
  11. METAMIZOL [Suspect]
     Active Substance: METAMIZOLE SODIUM
     Dosage: FREQ:6 H
     Route: 048
     Dates: start: 20250417, end: 20250420
  12. TACROLIMUS [Suspect]
     Active Substance: TACROLIMUS
     Dosage: UNK
     Route: 048
     Dates: start: 20250513, end: 20250524
  13. ASPIRIN [Suspect]
     Active Substance: ASPIRIN
     Dosage: UNK
     Route: 048
     Dates: start: 20250415, end: 20250518
  14. TORSEMIDE [Suspect]
     Active Substance: TORSEMIDE
     Dosage: UNK
     Route: 048
     Dates: start: 20250419, end: 20250423
  15. PANTOPRAZOLE SODIUM [Suspect]
     Active Substance: PANTOPRAZOLE SODIUM
     Dosage: UNK
     Route: 042
     Dates: start: 20250513, end: 20250616
  16. NPLATE [Concomitant]
     Active Substance: ROMIPLOSTIM
     Dosage: UNK, WEEKLY
     Route: 058
     Dates: start: 20250406, end: 20250606
  17. PRIVIGEN [Concomitant]
     Active Substance: HUMAN IMMUNOGLOBULIN G
     Dates: start: 20250406, end: 20250606
  18. CYCLOSPORINE [Concomitant]
     Active Substance: CYCLOSPORINE
     Dates: start: 20250606
  19. GRAFALON [Concomitant]
     Active Substance: LAPINE T-LYMPHOCYTE IMMUNE GLOBULIN
     Route: 042
     Dates: start: 20250613

REACTIONS (6)
  - Aplastic anaemia [Fatal]
  - Renal impairment [Unknown]
  - Cardiopulmonary failure [Unknown]
  - Viral infection [Unknown]
  - Fungal infection [Unknown]
  - Bacterial infection [Unknown]

NARRATIVE: CASE EVENT DATE: 20250603
